FAERS Safety Report 7555264-2 (Version None)
Quarter: 2011Q2

REPORT INFORMATION
  Report Type: 
  Country: None (occurrence: None)
  Receive Date: 20110617
  Receipt Date: 20110608
  Transmission Date: 20111010
  Serious: Yes (Hospitalization)
  Sender: FDA-Public Use
  Company Number: DE-JNJFOC-20110606373

PATIENT
  Age: 67 Year
  Sex: Female

DRUGS (13)
  1. CREON [Concomitant]
  2. PLAVIX [Concomitant]
  3. SIMPONI [Suspect]
     Route: 058
     Dates: start: 20110501
  4. CELEBREX [Concomitant]
  5. PREDNISOLONE [Concomitant]
  6. BONIVA [Concomitant]
  7. METOPROLOL TARTRATE [Concomitant]
  8. FUROSEMIDE [Concomitant]
  9. METOCLOPRAMIDE [Concomitant]
  10. ATACAND [Concomitant]
  11. FENTANYL-100 [Concomitant]
  12. PANTOPRAZOLE [Concomitant]
  13. SIMPONI [Suspect]
     Indication: RHEUMATOID ARTHRITIS
     Route: 058
     Dates: start: 20110414

REACTIONS (1)
  - OEDEMA PERIPHERAL [None]
